FAERS Safety Report 9744168 (Version 2)
Quarter: 2013Q4

REPORT INFORMATION
  Report Type: Report from Study
  Country: JP (occurrence: JP)
  Receive Date: 20131210
  Receipt Date: 20131210
  Transmission Date: 20140711
  Serious: Yes (Other)
  Sender: FDA-Public Use
  Company Number: JP-B.I. PHARMACEUTICALS,INC./RIDGEFIELD-2013-BI-16379NB

PATIENT
  Age: 77 Year
  Sex: Male
  Weight: 50 kg

DRUGS (7)
  1. PRAZAXA [Suspect]
     Indication: CEREBROVASCULAR ACCIDENT PROPHYLAXIS
     Dosage: 300 MG
     Route: 048
     Dates: start: 20120601, end: 20120614
  2. PRAZAXA [Suspect]
     Indication: ATRIAL FIBRILLATION
     Dosage: 220 MG
     Route: 048
     Dates: start: 20120614
  3. BEPRICOR [Concomitant]
     Indication: CARDIOVERSION
     Dosage: 100 MG
     Route: 048
     Dates: end: 20120628
  4. BEPRICOR [Concomitant]
     Dosage: 50 MG
     Route: 048
     Dates: start: 20120629
  5. JUVELA N [Concomitant]
     Dosage: 300 MG
     Route: 048
     Dates: end: 20120621
  6. URALYT [Concomitant]
     Dosage: 2 DF
     Route: 048
  7. ZYLORIC [Concomitant]
     Dosage: 100 MG
     Route: 048

REACTIONS (5)
  - Lacunar infarction [Recovered/Resolved]
  - Purpura [Recovered/Resolved]
  - Abdominal discomfort [Recovered/Resolved]
  - Drug ineffective [Unknown]
  - Pneumonia aspiration [Recovered/Resolved]
